FAERS Safety Report 7320289-9 (Version None)
Quarter: 2011Q1

REPORT INFORMATION
  Report Type: 
  Country: None (occurrence: None)
  Receive Date: 20110228
  Receipt Date: 20110222
  Transmission Date: 20110831
  Serious: No
  Sender: FDA-Public Use
  Company Number: US-PFIZER INC-2011038732

PATIENT
  Sex: Female

DRUGS (3)
  1. PRISTIQ [Suspect]
     Indication: DEPRESSION
     Dosage: 50 MG, 1X/DAY
     Route: 048
     Dates: start: 20110201, end: 20110201
  2. ZONISAMIDE [Concomitant]
     Indication: CONVULSION
     Dosage: UNK
  3. MEBARAL [Concomitant]
     Indication: CONVULSION
     Dosage: UNK

REACTIONS (3)
  - HALLUCINATION [None]
  - HYPERSENSITIVITY [None]
  - MEMORY IMPAIRMENT [None]
